FAERS Safety Report 24410855 (Version 1)
Quarter: 2024Q4

REPORT INFORMATION
  Report Type: Spontaneous
  Country: US (occurrence: None)
  Receive Date: 20241007
  Receipt Date: 20241007
  Transmission Date: 20250115
  Serious: Yes (Disabling, Other)
  Sender: Public
  Company Number: None

PATIENT
  Age: 39 Year
  Sex: Female

DRUGS (1)
  1. DOTAREM [Suspect]
     Active Substance: GADOTERATE MEGLUMINE
     Indication: Magnetic resonance imaging
     Dosage: OTHER QUANTITY : 1 INJECTION(S);?
     Route: 042
     Dates: start: 20241004, end: 20241004

REACTIONS (7)
  - Taste disorder [None]
  - Parosmia [None]
  - Dizziness [None]
  - Vision blurred [None]
  - Migraine [None]
  - Fatigue [None]
  - Contrast media reaction [None]

NARRATIVE: CASE EVENT DATE: 20241004
